FAERS Safety Report 4411933-4 (Version None)
Quarter: 2004Q3

REPORT INFORMATION
  Report Type: 
  Country: None (occurrence: None)
  Receive Date: 20040730
  Receipt Date: 20040513
  Transmission Date: 20050211
  Serious: No
  Sender: FDA-Public Use
  Company Number: US-GLAXOSMITHKLINE-A0510721A

PATIENT
  Sex: Female

DRUGS (2)
  1. ZANTAC [Suspect]
     Dosage: 150MG VARIABLE DOSE
     Route: 048
     Dates: end: 20040511
  2. NO CONCURRENT MEDICATION [Concomitant]

REACTIONS (2)
  - COUGH [None]
  - THROAT IRRITATION [None]
